FAERS Safety Report 25048745 (Version 2)
Quarter: 2025Q1

REPORT INFORMATION
  Report Type: Report from Study
  Country: IN (occurrence: IN)
  Receive Date: 20250307
  Receipt Date: 20250325
  Transmission Date: 20250409
  Serious: Yes (Other)
  Sender: CIPLA
  Company Number: IN-CIPLA LTD.-2025IN02667

PATIENT

DRUGS (7)
  1. SPIRONOLACTONE\TORSEMIDE [Suspect]
     Active Substance: SPIRONOLACTONE\TORSEMIDE
     Indication: Product used for unknown indication
     Dosage: 10 MILLIGRAM, BID (STRENGTH: 10 MG)
     Route: 065
     Dates: start: 2024, end: 202501
  2. TORSEMIDE [Suspect]
     Active Substance: TORSEMIDE
     Indication: Product used for unknown indication
     Dosage: 10 MILLIGRAM, BID
     Route: 048
     Dates: start: 202501, end: 2025
  3. TORSEMIDE [Suspect]
     Active Substance: TORSEMIDE
     Dosage: 10 MILLIGRAM, QD
     Route: 048
     Dates: start: 20250220
  4. WARFARIN SODIUM [Suspect]
     Active Substance: WARFARIN SODIUM
     Indication: Product used for unknown indication
     Dosage: 3 MILLIGRAM, QD (30 TABLETS)
     Route: 048
     Dates: start: 20250220
  5. ATEN [Concomitant]
     Indication: Product used for unknown indication
     Dosage: 25 MILLIGRAM, BID
     Route: 065
     Dates: start: 20250220
  6. LANOXIN [Concomitant]
     Active Substance: DIGOXIN
     Indication: Product used for unknown indication
     Dosage: 0.25 MILLIGRAM, QD (WEEKLY FOR 5 DAYS)
     Route: 065
     Dates: start: 20250220
  7. DILTIAZEM [Concomitant]
     Active Substance: DILTIAZEM
     Indication: Product used for unknown indication
     Dosage: 60 MILLIGRAM, TID (-1-TDS-1 YEAR)
     Route: 065

REACTIONS (2)
  - Myocardial infarction [Unknown]
  - Swelling face [Not Recovered/Not Resolved]

NARRATIVE: CASE EVENT DATE: 20250101
